FAERS Safety Report 8757616 (Version 1)
Quarter: 2012Q4

REPORT INFORMATION
  Report Type: 
  Country: US (occurrence: US)
  Receive Date: 20120828
  Receipt Date: 20120828
  Transmission Date: 20130627
  Serious: Yes (Hospitalization, Other)
  Sender: FDA-Public Use
  Company Number: US-009507513-0907USA01970

PATIENT

DRUGS (5)
  1. FOSAMAX [Suspect]
     Indication: OSTEOPOROSIS
     Dosage: UNK UNK, qd
     Route: 048
     Dates: start: 1998, end: 200809
  2. FOSAMAX [Suspect]
     Dosage: 70 mg, QW
     Route: 048
     Dates: start: 20031017, end: 20070117
  3. FOSAMAX [Suspect]
     Dosage: 10 mg, qd
     Route: 048
     Dates: start: 20040527
  4. FOSAMAX D [Concomitant]
     Indication: OSTEOPOROSIS
     Dosage: 70/2800
     Route: 048
     Dates: start: 20070213, end: 20080826
  5. ZOMETA [Concomitant]
     Indication: BREAST CANCER
     Route: 042
     Dates: start: 20080114, end: 200805

REACTIONS (31)
  - Osteonecrosis of jaw [Not Recovered/Not Resolved]
  - Breast cancer [Not Recovered/Not Resolved]
  - Periodontitis [Unknown]
  - Periodontitis [Unknown]
  - Osteomyelitis [Not Recovered/Not Resolved]
  - Localised infection [Unknown]
  - Breast cancer stage II [Not Recovered/Not Resolved]
  - Pigmentation disorder [Unknown]
  - Anaemia [Not Recovered/Not Resolved]
  - Device related infection [Unknown]
  - Bone loss [Unknown]
  - Radiation skin injury [Unknown]
  - Breast disorder [Unknown]
  - Vocal cord disorder [Recovering/Resolving]
  - Reflux laryngitis [Unknown]
  - Erythema [Unknown]
  - Breast cancer recurrent [Unknown]
  - Hot flush [Unknown]
  - Breast cancer metastatic [Not Recovered/Not Resolved]
  - Hydronephrosis [Recovering/Resolving]
  - Drug ineffective [Not Recovered/Not Resolved]
  - Dental caries [Unknown]
  - Toothache [Unknown]
  - Tooth fracture [Unknown]
  - Tooth disorder [Unknown]
  - Adverse drug reaction [Unknown]
  - Tooth infection [Unknown]
  - Skin exfoliation [Unknown]
  - Paraesthesia [Unknown]
  - Ovarian disorder [Unknown]
  - Adverse event [Unknown]
